FAERS Safety Report 4386961-8 (Version None)
Quarter: 2004Q2

REPORT INFORMATION
  Report Type: 
  Country: None (occurrence: None)
  Receive Date: 20040623
  Receipt Date: 20040609
  Transmission Date: 20050107
  Serious: Yes (Disabling)
  Sender: FDA-Public Use
  Company Number: 2004-BP-02038BP

PATIENT
  Age: 74 Year
  Sex: Female

DRUGS (11)
  1. CATAPRES-TTS-3 [Suspect]
     Indication: HYPERTENSION
     Dosage: 0.3 MG (7.5 MG), TO
     Route: 061
     Dates: start: 20021101
  2. CLONIDINE [Concomitant]
  3. INDERAL [Concomitant]
  4. PRINIVIL [Concomitant]
  5. PLAVIX [Concomitant]
  6. NITROGLYCERIN SPANSULES [Concomitant]
  7. NEXIUM [Concomitant]
  8. DONNATAL [Concomitant]
  9. DIAZEPAM [Concomitant]
  10. WELCH [Concomitant]
  11. NITRO-BID (GLYCERYL TRINITRATE) [Concomitant]

REACTIONS (4)
  - DRUG INEFFECTIVE [None]
  - HYPERTENSION [None]
  - LABILE BLOOD PRESSURE [None]
  - PHARMACEUTICAL PRODUCT COMPLAINT [None]
